FAERS Safety Report 5152526-3 (Version None)
Quarter: 2006Q4

REPORT INFORMATION
  Report Type: 
  Country: None (occurrence: None)
  Receive Date: 20061116
  Receipt Date: 20061106
  Transmission Date: 20070319
  Serious: Yes (Life-Threatening, Other)
  Sender: FDA-Public Use
  Company Number: US-ELI_LILLY_AND_COMPANY-US200611001718

PATIENT
  Age: 68 Year
  Sex: Female

DRUGS (8)
  1. ILETIN [Suspect]
     Indication: DIABETES MELLITUS INSULIN-DEPENDENT
  2. ILETIN [Suspect]
     Dates: start: 19470101
  3. HUMULIN R [Suspect]
     Indication: DIABETES MELLITUS INSULIN-DEPENDENT
  4. HUMULIN N [Suspect]
     Indication: DIABETES MELLITUS INSULIN-DEPENDENT
  5. HUMALOG [Suspect]
     Indication: DIABETES MELLITUS INSULIN-DEPENDENT
     Dosage: 40 U, 2/D
  6. HUMULIN N [Suspect]
     Dosage: 6 U, UNK
  7. LANTUS [Concomitant]
     Indication: DIABETES MELLITUS INSULIN-DEPENDENT
  8. ANTIHYPERTENSIVES [Concomitant]
     Indication: HYPERTENSION

REACTIONS (21)
  - BLOOD GLUCOSE FLUCTUATION [None]
  - BLOOD GLUCOSE INCREASED [None]
  - CARDIAC ARREST [None]
  - CARDIAC DISORDER [None]
  - CARDIAC FAILURE CONGESTIVE [None]
  - CHEST PAIN [None]
  - DISORIENTATION [None]
  - DRUG EXPOSURE DURING PREGNANCY [None]
  - EYE HAEMORRHAGE [None]
  - FALL [None]
  - HAEMATOMA [None]
  - MIDDLE INSOMNIA [None]
  - MUSCULOSKELETAL CHEST PAIN [None]
  - MUSCULOSKELETAL DISCOMFORT [None]
  - MYOCARDIAL INFARCTION [None]
  - PNEUMONIA [None]
  - RESPIRATORY ARREST [None]
  - RETINOPATHY [None]
  - SKIN LACERATION [None]
  - VASCULAR OCCLUSION [None]
  - VISUAL ACUITY REDUCED [None]
